FAERS Safety Report 25939828 (Version 1)
Quarter: 2025Q4

REPORT INFORMATION
  Report Type: Spontaneous
  Country: CN (occurrence: CN)
  Receive Date: 20251020
  Receipt Date: 20251020
  Transmission Date: 20260117
  Serious: Yes (Other)
  Sender: SANOFI AVENTIS
  Company Number: CN-DialogSolutions-SAAVPROD-PI831204-C1

PATIENT
  Age: 71 Year
  Sex: Male

DRUGS (3)
  1. DUPILUMAB [Suspect]
     Active Substance: DUPILUMAB
     Indication: Dermatitis atopic
     Dosage: 600 MG
     Dates: start: 20230518
  2. DUPILUMAB [Suspect]
     Active Substance: DUPILUMAB
     Dosage: 300 MG, QOW
     Route: 058
     Dates: start: 2023
  3. CORTICOSTEROID NOS [Concomitant]
     Active Substance: CORTICOSTEROID NOS
     Indication: Dermatitis atopic
     Dosage: UNK
     Route: 061

REACTIONS (9)
  - Pulmonary tuberculosis [Recovered/Resolved]
  - Cough [Recovered/Resolved]
  - Extrapulmonary tuberculosis [Recovered/Resolved]
  - Lymphadenopathy [Recovered/Resolved]
  - Tuberculosis [Recovered/Resolved]
  - Bronchial neoplasm [Recovering/Resolving]
  - Pulmonary mass [Recovering/Resolving]
  - Erythema [Recovering/Resolving]
  - Granuloma [Recovering/Resolving]

NARRATIVE: CASE EVENT DATE: 20231101
